FAERS Safety Report 11320590 (Version 1)
Quarter: 2015Q3

REPORT INFORMATION
  Report Type: Spontaneous
  Country: US (occurrence: None)
  Receive Date: 20150728
  Receipt Date: 20150728
  Transmission Date: 20151125
  Serious: Yes (Hospitalization)
  Sender: FDA-Public Use
  Company Number: None

PATIENT
  Age: 85 Year
  Sex: Male
  Weight: 96.8 kg

DRUGS (3)
  1. WARFARIN [Suspect]
     Active Substance: WARFARIN
     Indication: ATRIAL FIBRILLATION
     Route: 048
     Dates: start: 20141010, end: 20141021
  2. WARFARIN [Suspect]
     Active Substance: WARFARIN
     Indication: CEREBROVASCULAR ACCIDENT PROPHYLAXIS
     Route: 048
     Dates: start: 20141010, end: 20141021
  3. PREDNISONE. [Suspect]
     Active Substance: PREDNISONE
     Indication: GOUTY ARTHRITIS
     Route: 048
     Dates: start: 20141014, end: 20141024

REACTIONS (6)
  - Coagulopathy [None]
  - Epistaxis [None]
  - International normalised ratio increased [None]
  - Rectal haemorrhage [None]
  - Lower gastrointestinal haemorrhage [None]
  - Anaemia [None]

NARRATIVE: CASE EVENT DATE: 20141022
